FAERS Safety Report 24694924 (Version 1)
Quarter: 2024Q4

REPORT INFORMATION
  Report Type: Spontaneous
  Country: US (occurrence: None)
  Receive Date: 20241203
  Receipt Date: 20241203
  Transmission Date: 20250115
  Serious: Yes (Hospitalization)
  Sender: Public
  Company Number: None

PATIENT
  Sex: Female
  Weight: 67.13 kg

DRUGS (4)
  1. WINREVAIR [Suspect]
     Active Substance: SOTATERCEPT-CSRK
     Indication: Pulmonary arterial hypertension
     Dosage: 0.4 ML EVERY 3 WEEKS SUBCUTANEOUS?
     Route: 058
  2. VELETRI [Suspect]
     Active Substance: EPOPROSTENOL
  3. ORENITRAM [Suspect]
     Active Substance: TREPROSTINIL
  4. OPSUMIT [Concomitant]
     Active Substance: MACITENTAN

REACTIONS (5)
  - Thrombosis [None]
  - Dyspnoea [None]
  - Dyspnoea [None]
  - Therapy interrupted [None]
  - Therapy cessation [None]
